FAERS Safety Report 25512202 (Version 1)
Quarter: 2025Q3

REPORT INFORMATION
  Report Type: Spontaneous
  Country: US (occurrence: US)
  Receive Date: 20250703
  Receipt Date: 20250703
  Transmission Date: 20251021
  Serious: No
  Sender: RADIUS PHARM
  Company Number: US-RADIUS HEALTH INC.-2024US007752

PATIENT
  Age: 64 Year
  Sex: Female

DRUGS (1)
  1. TYMLOS [Suspect]
     Active Substance: ABALOPARATIDE
     Indication: Senile osteoporosis
     Route: 058
     Dates: start: 202409

REACTIONS (13)
  - Fatigue [Unknown]
  - Bone pain [Unknown]
  - Insomnia [Unknown]
  - Aspartate aminotransferase increased [Unknown]
  - Alanine aminotransferase increased [Unknown]
  - Blood urea nitrogen/creatinine ratio decreased [Unknown]
  - Pruritus [Unknown]
  - Inflammation [Unknown]
  - Bone marrow oedema [Unknown]
  - Pain in extremity [Unknown]
  - Arthralgia [Unknown]
  - Back pain [Unknown]
  - Irritability [Unknown]

NARRATIVE: CASE EVENT DATE: 20240901
